FAERS Safety Report 12183989 (Version 1)
Quarter: 2016Q1

REPORT INFORMATION
  Report Type: Spontaneous
  Country: US (occurrence: US)
  Receive Date: 20160316
  Receipt Date: 20160316
  Transmission Date: 20160526
  Serious: No
  Sender: FDA-Public Use
  Company Number: US-GLAXOSMITHKLINE-US2016033908

PATIENT
  Age: 79 Year
  Sex: Female

DRUGS (5)
  1. BREO ELLIPTA [Suspect]
     Active Substance: FLUTICASONE FUROATE\VILANTEROL TRIFENATATE
     Indication: SENSATION OF FOREIGN BODY
     Dosage: 100/25 MCG 1 PUFF, 1D
     Route: 055
     Dates: start: 20160305
  2. LANTUS [Concomitant]
     Active Substance: INSULIN GLARGINE
  3. METFORMIN [Concomitant]
     Active Substance: METFORMIN HYDROCHLORIDE
  4. HYDROCODONE [Concomitant]
     Active Substance: HYDROCODONE
  5. GLIPIZIDE. [Concomitant]
     Active Substance: GLIPIZIDE

REACTIONS (3)
  - Malaise [Unknown]
  - Off label use [Unknown]
  - Device use error [Unknown]

NARRATIVE: CASE EVENT DATE: 2016
